FAERS Safety Report 12638620 (Version 1)
Quarter: 2016Q3

REPORT INFORMATION
  Report Type: Spontaneous
  Country: JP (occurrence: JP)
  Receive Date: 20160809
  Receipt Date: 20160809
  Transmission Date: 20161109
  Serious: Yes (Death)
  Sender: FDA-Public Use
  Company Number: JP-SA-2016SA144644

PATIENT
  Age: 75 Year
  Sex: Female

DRUGS (1)
  1. DOCETAXEL. [Suspect]
     Active Substance: DOCETAXEL
     Indication: METASTASES TO LIVER
     Dosage: DOSE: 80 MG/BODY
     Route: 065

REACTIONS (7)
  - Depressed level of consciousness [Fatal]
  - Hyperkalaemia [Fatal]
  - Hyperphosphataemia [Fatal]
  - Tumour lysis syndrome [Fatal]
  - Respiratory disorder [Fatal]
  - Hyperuricaemia [Fatal]
  - Condition aggravated [Fatal]
